FAERS Safety Report 20443919 (Version 1)
Quarter: 2022Q1

REPORT INFORMATION
  Report Type: Spontaneous
  Country: US (occurrence: US)
  Receive Date: 20220208
  Receipt Date: 20220208
  Transmission Date: 20220423
  Serious: No
  Sender: FDA-Public Use
  Company Number: US-SA-SAC20220203000049

PATIENT
  Sex: Female

DRUGS (1)
  1. AUBAGIO [Suspect]
     Active Substance: TERIFLUNOMIDE
     Indication: Multiple sclerosis
     Dosage: 14 MG, QD
     Route: 048
     Dates: start: 20200602

REACTIONS (9)
  - Pain [Unknown]
  - Pharyngeal swelling [Unknown]
  - Sensory disturbance [Unknown]
  - Mouth swelling [Unknown]
  - Bladder disorder [Unknown]
  - Bladder pain [Unknown]
  - Nasopharyngitis [Unknown]
  - Nasal congestion [Unknown]
  - Product dose omission issue [Unknown]
